FAERS Safety Report 8791541 (Version 1)
Quarter: 2012Q4

REPORT INFORMATION
  Report Type: Spontaneous
  Country: ES (occurrence: None)
  Receive Date: 20120913
  Receipt Date: 20120913
  Transmission Date: 20130627
  Serious: Yes (Other)
  Sender: FDA-Public Use
  Company Number: FK201202619

PATIENT
  Age: 6 Year
  Sex: Female

DRUGS (2)
  1. LEVETIRACETAM [Suspect]
     Indication: CONVULSION
     Dosage: 15 mg/kg/day
  2. LEVETIRACETAM [Suspect]
     Indication: CONVULSION

REACTIONS (12)
  - Autism [None]
  - Headache [None]
  - Vomiting [None]
  - Dysphemia [None]
  - Stereotypy [None]
  - Fall [None]
  - Clumsiness [None]
  - Aggression [None]
  - Regressive behaviour [None]
  - Electroencephalogram abnormal [None]
  - Partial seizures [None]
  - Tremor [None]
